FAERS Safety Report 7576736-0 (Version None)
Quarter: 2011Q2

REPORT INFORMATION
  Report Type: 
  Country: None (occurrence: None)
  Receive Date: 20110628
  Receipt Date: 20091121
  Transmission Date: 20111010
  Serious: Yes (Hospitalization, Other)
  Sender: FDA-Public Use
  Company Number: US-BAYER-200940957NA

PATIENT
  Age: 58 Year
  Sex: Male
  Weight: 88 kg

DRUGS (19)
  1. NITROGLYCERIN [Concomitant]
     Dosage: UNK
     Dates: start: 20070122, end: 20070122
  2. CARDIOPLEGIA [Concomitant]
     Dosage: UNK
     Dates: start: 20070122, end: 20070122
  3. HYDRALAZINE HCL [Concomitant]
     Dosage: 100 MG, QD
     Route: 048
  4. ATENOLOL [Concomitant]
  5. MORPHINE [Concomitant]
     Dosage: UNK
     Dates: start: 20070122, end: 20070122
  6. RED BLOOD CELLS [Concomitant]
     Dosage: UNK
     Dates: start: 20070122
  7. SODIUM NITROPRUSSIDE [Concomitant]
     Dosage: UNK
     Dates: start: 20070122, end: 20070122
  8. DOPAMINE HCL [Concomitant]
     Dosage: UNK
     Dates: start: 20070122, end: 20070122
  9. VANCOMYCIN [Concomitant]
     Dosage: UNK
     Dates: start: 20070122
  10. HEPARIN [Concomitant]
     Dosage: UNK
     Dates: start: 20070122, end: 20070122
  11. FENTANYL [Concomitant]
     Dosage: UNK
     Dates: start: 20070122, end: 20070122
  12. MANNITOL [Concomitant]
     Dosage: UNK
     Dates: start: 20070122, end: 20070122
  13. ATROPINE [Concomitant]
     Dosage: UNK
     Dates: start: 20070122, end: 20070122
  14. FRESH FROZEN PLASMA [Concomitant]
     Dosage: UNK
     Dates: start: 20070122
  15. TRASYLOL [Suspect]
     Indication: AORTIC DISSECTION
     Dosage: TEST DOSE 2CC LOADING DOSE 200ML, THE 50CC/HR
     Route: 042
     Dates: start: 20070122, end: 20070122
  16. NICARDIPINE HCL [Concomitant]
     Dosage: UNK
     Dates: start: 20070122, end: 20070122
  17. PLATELETS [Concomitant]
     Dosage: UNK
     Dates: start: 20070122
  18. METOPROLOL TARTRATE [Concomitant]
     Dosage: 75 MG EVERY 12 HOURS
     Route: 048
  19. FUROSEMIDE [Concomitant]
     Dosage: UNK
     Dates: start: 20070122, end: 20070122

REACTIONS (10)
  - STRESS [None]
  - INJURY [None]
  - RENAL INJURY [None]
  - FEAR [None]
  - PAIN [None]
  - ANXIETY [None]
  - RENAL FAILURE [None]
  - UNEVALUABLE EVENT [None]
  - EMOTIONAL DISTRESS [None]
  - ANHEDONIA [None]
